FAERS Safety Report 19166952 (Version 2)
Quarter: 2023Q4

REPORT INFORMATION
  Report Type: Report from Study
  Country: AT (occurrence: AT)
  Receive Date: 20210421
  Receipt Date: 20231023
  Transmission Date: 20240110
  Serious: Yes (Hospitalization)
  Sender: FDA-Public Use
  Company Number: AT-CELLTRION INC.-2018AT022036

PATIENT

DRUGS (24)
  1. HERCEPTIN [Suspect]
     Active Substance: TRASTUZUMAB
     Indication: Breast cancer
     Dosage: 8 MG, DAILY, MOST RECENT DOSE PRIOR TO THE EVENT: 19/JUL/2018.
     Route: 042
     Dates: start: 20180628, end: 20180628
  2. TRASTUZUMAB [Suspect]
     Active Substance: TRASTUZUMAB
     Dosage: 8 MG, DAILY (MOST RECENT DOSE PRIOR TO THE EVENT: 19-JUL-2018)
     Route: 042
     Dates: start: 20180628, end: 20180628
  3. TRASTUZUMAB [Suspect]
     Active Substance: TRASTUZUMAB
     Dosage: 8 MG, DAILY (MOST RECENT DOSE PRIOR TO THE EVENT: 19-JUL-2018)
     Route: 042
     Dates: start: 20180719, end: 20180719
  4. PERTUZUMAB [Suspect]
     Active Substance: PERTUZUMAB
     Indication: Breast cancer
     Dosage: 840 MG, DAILY (MOST RECENT DOSE PRIOR TO THE EVENT: 19-JUL2018 )
     Route: 042
     Dates: start: 20180628, end: 20180719
  5. PERTUZUMAB [Suspect]
     Active Substance: PERTUZUMAB
     Dosage: 840 MG, DAILY (MOST RECENT DOSE PRIOR TO THE EVENT: 19/JUL/2018)
     Route: 042
     Dates: start: 20180628, end: 20180628
  6. TAXOTERE [Suspect]
     Active Substance: DOCETAXEL
     Indication: Breast cancer
     Dosage: 50 MG, EVERY 3 WEEKS (MOST RECENT DOSE PRIOR TO THE EVENT: 19/JUL2018)
     Route: 042
     Dates: start: 20180628, end: 20180719
  7. DOCETAXEL [Suspect]
     Active Substance: DOCETAXEL
     Indication: Breast cancer
     Dosage: 50 MG, EVERY 3 WEEKS (MOST RECENT DOSE PRIOR TO THE EVENT: 19/JUL/2018)
     Route: 042
     Dates: start: 20180628, end: 20180628
  8. HALCION [Concomitant]
     Active Substance: TRIAZOLAM
     Dosage: ONGOING = CHECKED
     Dates: start: 20181018
  9. NOVALGIN (METAMIZOLE SODIUM) [Concomitant]
     Active Substance: METAMIZOLE SODIUM
     Dosage: ONGOING = CHECKED
     Dates: start: 20180615
  10. ENALAPRIL [Concomitant]
     Active Substance: ENALAPRIL
     Indication: Left ventricular dysfunction
     Dosage: UNK
     Dates: start: 20180809
  11. BISOPROLOL [Concomitant]
     Active Substance: BISOPROLOL\BISOPROLOL FUMARATE
     Indication: Left ventricular dysfunction
     Dosage: UNK
     Dates: start: 20180809
  12. ALPRAZOLAM [Concomitant]
     Active Substance: ALPRAZOLAM
     Dosage: ONGOING = NOT CHECKED
     Dates: start: 20180615, end: 20181015
  13. EMEND [Concomitant]
     Active Substance: APREPITANT
     Dosage: ONGOING = CHECKED
     Dates: start: 20180809
  14. ZOFRAN [Concomitant]
     Active Substance: ONDANSETRON HYDROCHLORIDE
     Dosage: ONGOING = CHECKED
     Dates: start: 20180628
  15. ZOFRAN [Concomitant]
     Active Substance: ONDANSETRON HYDROCHLORIDE
     Dosage: ONGOING = CHECKED
     Dates: start: 20180715
  16. DIMETHINDENE [Concomitant]
     Active Substance: DIMETHINDENE
     Dosage: ONGOING = CHECKED
     Dates: start: 20180628
  17. SPIRONOLACTONE [Concomitant]
     Active Substance: SPIRONOLACTONE
     Dosage: ONGOING = CHECKED
     Dates: start: 20180830
  18. PANTOPRAZOLE [Concomitant]
     Active Substance: PANTOPRAZOLE
     Dosage: ONGOING = CHECKED
     Dates: start: 20180715
  19. BIOFLORIN                          /07959901/ [Concomitant]
     Dosage: UNK
     Dates: start: 20181011, end: 20181020
  20. LOVENOX [Concomitant]
     Active Substance: ENOXAPARIN SODIUM
     Dosage: ONGOING = CHECKED
     Dates: start: 20180715
  21. NEULASTA [Concomitant]
     Active Substance: PEGFILGRASTIM
     Dosage: ONGOING = CHECKED
     Dates: start: 20180720
  22. POLYETHYLENE GLYCOL 3350\POTASSIUM CHLORIDE\SODIUM BICARBONATE\SODIUM [Concomitant]
     Active Substance: POLYETHYLENE GLYCOL 3350\POTASSIUM CHLORIDE\SODIUM BICARBONATE\SODIUM CHLORIDE
     Dosage: ONGOING = CHECKED
  23. DEXAMETHASONE [Concomitant]
     Active Substance: DEXAMETHASONE
     Dosage: ONGOING = CHECKED
     Dates: start: 20180628
  24. DEXAMETHASONE [Concomitant]
     Active Substance: DEXAMETHASONE
     Dosage: ONGOING = CHECKED
     Dates: start: 20180628

REACTIONS (5)
  - C-reactive protein increased [Recovered/Resolved]
  - Left ventricular dysfunction [Recovered/Resolved]
  - Diarrhoea [Recovered/Resolved]
  - Off label use [Unknown]
  - Underdose [Unknown]

NARRATIVE: CASE EVENT DATE: 20180809
